FAERS Safety Report 18364441 (Version 1)
Quarter: 2020Q4

REPORT INFORMATION
  Report Type: Spontaneous
  Country: US (occurrence: US)
  Receive Date: 20201008
  Receipt Date: 20201008
  Transmission Date: 20210114
  Serious: Yes (Other)
  Sender: FDA-Public Use
  Company Number: None

PATIENT
  Age: 55 Year
  Sex: Female
  Weight: 74.25 kg

DRUGS (1)
  1. VYVANSE [Suspect]
     Active Substance: LISDEXAMFETAMINE DIMESYLATE

REACTIONS (7)
  - Therapy cessation [None]
  - Fibromyalgia [None]
  - Myalgia [None]
  - Pruritus [None]
  - Pain [None]
  - Urticaria [None]
  - Arthralgia [None]

NARRATIVE: CASE EVENT DATE: 20191231
